FAERS Safety Report 4815678-8 (Version None)
Quarter: 2005Q4

REPORT INFORMATION
  Report Type: 
  Country: None (occurrence: None)
  Receive Date: 20051027
  Receipt Date: 20051018
  Transmission Date: 20060501
  Serious: Yes (Hospitalization)
  Sender: FDA-Public Use
  Company Number: 2005-03980

PATIENT
  Age: 70 Year
  Sex: Male

DRUGS (2)
  1. COLCHICINE [Suspect]
     Indication: GOUTY ARTHRITIS
     Dosage: 1.5 MG, DAILY
  2. FLUVASTATIN                      (FLUVASTATIN) [Suspect]
     Dosage: 80 MG, DAILY

REACTIONS (1)
  - RHABDOMYOLYSIS [None]
